APPROVED DRUG PRODUCT: HEXADROL
Active Ingredient: DEXAMETHASONE SODIUM PHOSPHATE
Strength: EQ 20MG PHOSPHATE/ML
Dosage Form/Route: INJECTABLE;INJECTION
Application: N014694 | Product #004
Applicant: ASPEN GLOBAL INC
Approved: Approved Prior to Jan 1, 1982 | RLD: No | RS: No | Type: DISCN